FAERS Safety Report 23951119 (Version 1)
Quarter: 2024Q2

REPORT INFORMATION
  Report Type: Report from Study
  Country: DE (occurrence: DE)
  Receive Date: 20240607
  Receipt Date: 20240607
  Transmission Date: 20240716
  Serious: Yes (Hospitalization, Other)
  Sender: FDA-Public Use
  Company Number: DE-009507513-2404DEU011778

PATIENT
  Age: 79 Year
  Sex: Male
  Weight: 92 kg

DRUGS (25)
  1. PEMETREXED [Suspect]
     Active Substance: PEMETREXED
     Indication: Non-small cell lung cancer
     Dosage: 1020 MG FIRST LINE
     Route: 065
     Dates: start: 20231123, end: 20231214
  2. PEMETREXED [Suspect]
     Active Substance: PEMETREXED
     Dosage: 765 MG FIRST LINE
     Route: 065
     Dates: start: 20240116, end: 20240209
  3. PEMBROLIZUMAB [Suspect]
     Active Substance: PEMBROLIZUMAB
     Indication: Non-small cell lung cancer
     Dosage: 200MG FIRST LINE
     Route: 065
     Dates: start: 20231123, end: 20240116
  4. CISPLATIN [Suspect]
     Active Substance: CISPLATIN
     Indication: Non-small cell lung cancer
     Dosage: 153 MG FIRST LINE
     Route: 065
     Dates: start: 20231123, end: 20231214
  5. CARBOPLATIN [Suspect]
     Active Substance: CARBOPLATIN
     Indication: Non-small cell lung cancer
     Dosage: 245 MG FIRST LINE
     Route: 065
     Dates: start: 20240116, end: 20240209
  6. APREPITANT [Concomitant]
     Active Substance: APREPITANT
     Dosage: 125 MILLIGRAM, CYCLE (125 MG ORAL, PER CYCLE, DAY 1))
     Route: 048
     Dates: start: 20231123
  7. APREPITANT [Concomitant]
     Active Substance: APREPITANT
     Dosage: 80 MILLIGRAM, CYCLE (80 MG ORAL, PER CYCLE, DAYS 2-3)
     Route: 048
     Dates: start: 20231124
  8. OMEPRAZOLE [Concomitant]
     Active Substance: DONEPEZIL HYDROCHLORIDE\OMEPRAZOLE\OMEPRAZOLE MAGNESIUM
     Dosage: 20 MILLIGRAM, QD
     Route: 048
  9. PREDNISOLONE [Concomitant]
     Active Substance: PREDNISOLONE
     Dosage: 10 MILLIGRAM, QD (5 MILLIGRAM, BID)
     Route: 048
     Dates: start: 1994, end: 20231222
  10. PREDNISOLONE [Concomitant]
     Active Substance: PREDNISOLONE
     Dosage: 10 MILLIGRAM, QD (5 MILLIGRAM, BID)
     Route: 048
     Dates: start: 20240112
  11. PREDNISONE [Concomitant]
     Active Substance: PREDNISONE
     Dosage: 5 MILLIGRAM, QD
     Route: 048
     Dates: start: 20231226, end: 20240112
  12. ISOTONIC SODIUM CHLORIDE SOLUTION [Concomitant]
     Active Substance: SODIUM CHLORIDE
     Dosage: 500 MILLILITER, CYCLE (PER CYCLE, DAY 1-3)
     Route: 042
     Dates: start: 20231123
  13. ISOTONIC SODIUM CHLORIDE SOLUTION [Concomitant]
     Active Substance: SODIUM CHLORIDE
     Dosage: 500 MILLILITER, CYCLE (PER CYCLE, DAY 1-3)
     Route: 042
     Dates: start: 20231123
  14. ACETAMINOPHEN [Concomitant]
     Active Substance: ACETAMINOPHEN
     Dosage: 1000 MILLIGRAM, CYCLE (I.V. PER CYCLE)
     Route: 065
     Dates: start: 20231123
  15. GRANISETRON HYDROCHLORIDE [Concomitant]
     Active Substance: GRANISETRON HYDROCHLORIDE
     Dosage: 1 MILLIGRAM, PER CYCLE
     Route: 042
     Dates: start: 20231123
  16. DEXAMETHASONE [Concomitant]
     Active Substance: DEXAMETHASONE
     Dosage: 8 MILLIGRAM, PER CYCLE
     Route: 042
     Dates: start: 20231123
  17. DEXAMETHASONE [Concomitant]
     Active Substance: DEXAMETHASONE
     Dosage: 8 MILLIGRAM, PER CYCLE PREVIOUS DAY
     Route: 048
     Dates: start: 20231122
  18. DEXAMETHASONE [Concomitant]
     Active Substance: DEXAMETHASONE
     Dosage: 4 MILLIGRAM, PER CYCLE
     Route: 048
     Dates: start: 20231123
  19. DEXAMETHASONE [Concomitant]
     Active Substance: DEXAMETHASONE
     Dosage: 8 MILLIGRAM, PER CYCLE DAY 2-3
     Route: 048
     Dates: start: 20231124
  20. GRANISETRON [Concomitant]
     Active Substance: GRANISETRON
     Dosage: 2 MILLIGRAM, PER CYCLE, DAY 2-3
     Route: 048
     Dates: start: 20231124
  21. FOLIC ACID [Concomitant]
     Active Substance: FOLIC ACID
     Dosage: 400 MICROGRAM, PER CYCLE, MINIMUM 7 DAYS PRIOR TO CTX-START
     Route: 048
     Dates: start: 20231116
  22. VITAMIN B12 [Concomitant]
     Active Substance: CYANOCOBALAMIN
     Dosage: 1000 MILLIGRAM, S.C. PER CYCLE, MINIMUM 7 DAYS PRIOR TO CTX-START
     Route: 048
  23. Novalgin [Concomitant]
     Dosage: 4000 MILLIGRAM, QD (1000 MILLIGRAM, QID)
     Route: 048
  24. ELIQUIS [Concomitant]
     Active Substance: APIXABAN
     Dosage: 10 MILLIGRAM, QD (5 MILLIGRAM, BID)
     Route: 048
     Dates: start: 20231222
  25. ENTRESTO [Concomitant]
     Active Substance: SACUBITRIL\VALSARTAN
     Dosage: 52 MILLIGRAM, QD (26 MILLIGRAM, BID)
     Route: 048
     Dates: start: 2019

REACTIONS (5)
  - Immune thrombocytopenia [Recovering/Resolving]
  - Pancytopenia [Recovering/Resolving]
  - Leukopenia [Recovering/Resolving]
  - Anaemia [Recovering/Resolving]
  - Mucosal inflammation [Recovering/Resolving]

NARRATIVE: CASE EVENT DATE: 20231219
